FAERS Safety Report 5861218-4 (Version None)
Quarter: 2008Q3

REPORT INFORMATION
  Report Type: 
  Country: None (occurrence: None)
  Receive Date: 20080827
  Receipt Date: 20080320
  Transmission Date: 20090109
  Serious: No
  Sender: FDA-Public Use
  Company Number: US-ABBOTT-08P-163-0443417-00

PATIENT
  Sex: Female
  Weight: 62.652 kg

DRUGS (9)
  1. NIASPAN [Suspect]
     Indication: BLOOD CHOLESTEROL INCREASED
     Route: 048
     Dates: start: 20071201, end: 20080201
  2. NIASPAN [Suspect]
     Route: 048
     Dates: start: 20080201, end: 20080201
  3. NIASPAN [Suspect]
     Route: 048
     Dates: start: 20080201, end: 20080314
  4. NIASPAN [Suspect]
     Route: 048
     Dates: start: 20080318
  5. METOPROLOL SUCCINATE [Concomitant]
     Indication: CARDIOVASCULAR EVENT PROPHYLAXIS
     Route: 048
  6. LOSARTAN POTASSIUM [Concomitant]
     Indication: CARDIOVASCULAR EVENT PROPHYLAXIS
     Route: 048
  7. CLOPIDOGREL [Concomitant]
     Indication: CARDIOVASCULAR EVENT PROPHYLAXIS
     Route: 048
  8. ASPIRIN [Concomitant]
     Indication: CARDIOVASCULAR EVENT PROPHYLAXIS
     Route: 048
  9. FISH OIL [Concomitant]
     Indication: MINERAL SUPPLEMENTATION
     Route: 048

REACTIONS (3)
  - FLUSHING [None]
  - INSOMNIA [None]
  - MYALGIA [None]
